FAERS Safety Report 4696156-6 (Version None)
Quarter: 2005Q2

REPORT INFORMATION
  Report Type: 
  Country: None (occurrence: None)
  Receive Date: 20050620
  Receipt Date: 20050602
  Transmission Date: 20051028
  Serious: Yes (Life-Threatening)
  Sender: FDA-Public Use
  Company Number: GB-YAMANOUCHI-YEHQ20050533

PATIENT
  Age: 70 Year
  Sex: Female
  Weight: 50 kg

DRUGS (10)
  1. VESICARE [Suspect]
     Indication: URINARY INCONTINENCE
     Dosage: 5 MG QD PO
     Route: 048
     Dates: start: 20050411, end: 20050427
  2. LANSOPRAZOLE [Concomitant]
  3. ASPIRINA [Concomitant]
  4. GLICLAZIDE [Concomitant]
  5. CITALOPRAM [Concomitant]
  6. ATROPINE SULPHATE [Concomitant]
  7. TIMOLOL MALEATE [Concomitant]
  8. EXAMETHASONE [Concomitant]
  9. HYPRMELLOSE [Concomitant]
  10. METFORMIN [Concomitant]

REACTIONS (1)
  - RENAL FAILURE ACUTE [None]
